FAERS Safety Report 8633952 (Version 3)
Quarter: 2012Q4

REPORT INFORMATION
  Report Type: 
  Country: CO (occurrence: CO)
  Receive Date: 20120626
  Receipt Date: 20120912
  Transmission Date: 20130627
  Serious: Yes (Other)
  Sender: FDA-Public Use
  Company Number: CO-AMGEN-COLSP2012038477

PATIENT
  Age: 72 Year
  Sex: Female

DRUGS (5)
  1. ENBREL [Suspect]
     Indication: ANKYLOSING SPONDYLITIS
     Dosage: 50 mg, weekly
     Route: 058
     Dates: start: 201204
  2. GLUCOSAMINE [Concomitant]
     Indication: CHONDROPATHY
     Dosage: 1500 mg once a day orally
     Route: 048
     Dates: start: 2005
  3. ELTROXIN [Concomitant]
     Indication: HYPOTHYROIDISM
     Dosage: unknown dose once a day
     Route: 048
     Dates: start: 2005
  4. CALCIUM [Concomitant]
     Indication: ANKYLOSING SPONDYLITIS
     Dosage: 1 mg, 1x/day
     Route: 048
  5. OMEGA                              /01454401/ [Concomitant]
     Dosage: UNK

REACTIONS (5)
  - Ankylosing spondylitis [Not Recovered/Not Resolved]
  - Skin discolouration [Unknown]
  - Injection site reaction [Recovered/Resolved]
  - Injection site pruritus [Recovered/Resolved]
  - Injection site pain [Recovered/Resolved]
